FAERS Safety Report 14792355 (Version 1)
Quarter: 2018Q2

REPORT INFORMATION
  Report Type: Spontaneous
  Country: US (occurrence: US)
  Receive Date: 20180414
  Receipt Date: 20180414
  Transmission Date: 20180711
  Serious: Yes (Hospitalization)
  Sender: FDA-Public Use
  Company Number: None

PATIENT
  Age: 56 Year
  Sex: Male

DRUGS (4)
  1. VOTRIENT [Suspect]
     Active Substance: PAZOPANIB HYDROCHLORIDE
     Indication: RENAL CANCER
     Route: 048
     Dates: start: 20171025
  2. CELECOXIB. [Concomitant]
     Active Substance: CELECOXIB
  3. TYLENOL [Concomitant]
     Active Substance: ACETAMINOPHEN
  4. PROBIOTIC [Concomitant]
     Active Substance: PROBIOTICS NOS

REACTIONS (5)
  - Chest pain [None]
  - Therapy change [None]
  - Malignant neoplasm progression [None]
  - Hepatic enzyme increased [None]
  - Lung neoplasm malignant [None]

NARRATIVE: CASE EVENT DATE: 20180330
